FAERS Safety Report 11074123 (Version 1)
Quarter: 2015Q2

REPORT INFORMATION
  Report Type: Spontaneous
  Country: GB (occurrence: GB)
  Receive Date: 20150429
  Receipt Date: 20150429
  Transmission Date: 20150821
  Serious: Yes (Other)
  Sender: FDA-Public Use
  Company Number: GB-ACCORD-030335

PATIENT
  Age: 74 Year
  Sex: Female
  Weight: 87 kg

DRUGS (19)
  1. PHYLLOCONTIN [Concomitant]
     Active Substance: AMINOPHYLLINE
     Dates: start: 20140918
  2. ALLOPURINOL. [Concomitant]
     Active Substance: ALLOPURINOL
     Dates: start: 20140918
  3. RAMIPRIL. [Suspect]
     Active Substance: RAMIPRIL
     Indication: PRODUCT USED FOR UNKNOWN INDICATION
     Dates: start: 20150330
  4. MOVELAT [Concomitant]
     Dosage: APPLY DAILY.
     Dates: start: 20140918
  5. ATROVENT [Concomitant]
     Active Substance: IPRATROPIUM BROMIDE
     Dosage: 2 PUFFS FOUR TIMES A DAY.
     Dates: start: 20140918
  6. QUINIDINE [Concomitant]
     Active Substance: QUINIDINE
     Dosage: EVERY NIGHT
     Dates: start: 20140918
  7. VENTOLIN [Concomitant]
     Active Substance: ALBUTEROL SULFATE
     Dosage: TWO PUFFS FOUR TIMES A DAY
     Dates: start: 20140918
  8. PARACETAMOL [Concomitant]
     Active Substance: ACETAMINOPHEN
     Dates: start: 20141002
  9. SIMVASTATIN. [Concomitant]
     Active Substance: SIMVASTATIN
     Dosage: ONCE NIGHTLY
     Dates: start: 20140918, end: 20150202
  10. CARBOCISTEINE/CARBOCISTEINE LYSINE/CARBOCISTEINE SODIUM [Concomitant]
     Dates: start: 20140918
  11. BISOPROLOL [Concomitant]
     Active Substance: BISOPROLOL
     Dates: start: 20150217
  12. SPIRONOLACTONE. [Concomitant]
     Active Substance: SPIRONOLACTONE
     Dates: start: 20140918
  13. HYDROXOCOBALAMIN/HYDROXOCOBALAMIN ACETATE/HYDROXOCOBALAMIN HYDROCHLORIDE [Concomitant]
     Dosage: USE AS DIRECTED
     Dates: start: 20140918
  14. SYMBICORT [Concomitant]
     Active Substance: BUDESONIDE\FORMOTEROL FUMARATE DIHYDRATE
     Dosage: 2 PUFFS TWICE A DAY.
     Dates: start: 20140918
  15. FUROSEMIDE. [Concomitant]
     Active Substance: FUROSEMIDE
     Dates: start: 20140918
  16. DOMPERIDONE [Concomitant]
     Active Substance: DOMPERIDONE
     Dates: start: 20140918
  17. ATORVASTATIN [Concomitant]
     Active Substance: ATORVASTATIN
     Dates: start: 20150202
  18. ASPIRIN. [Concomitant]
     Active Substance: ASPIRIN
     Dates: start: 20140918
  19. VISCOTEARS [Concomitant]
     Active Substance: CARBOMER
     Dates: start: 20130718

REACTIONS (1)
  - Glomerular filtration rate decreased [Not Recovered/Not Resolved]

NARRATIVE: CASE EVENT DATE: 20150414
